FAERS Safety Report 7860166-8 (Version None)
Quarter: 2011Q4

REPORT INFORMATION
  Report Type: 
  Country: None (occurrence: None)
  Receive Date: 20111027
  Receipt Date: 20111025
  Transmission Date: 20120403
  Serious: Yes (Hospitalization)
  Sender: FDA-Public Use
  Company Number: FR-SANOFI-AVENTIS-2011SA070108

PATIENT
  Age: 78 Year
  Sex: Male

DRUGS (12)
  1. INDAPAMIDE [Suspect]
     Route: 048
     Dates: end: 20110826
  2. MARSILID PHOSPHATE TAB [Suspect]
     Route: 048
     Dates: start: 20110825, end: 20110902
  3. ROSUVASTATIN CALCIUM [Suspect]
     Route: 048
     Dates: end: 20110826
  4. LORAZEPAM [Suspect]
     Route: 048
  5. NEXIUM [Suspect]
     Route: 048
  6. CORDARONE [Suspect]
     Dosage: DOSE:1 UNIT(S)
  7. MARSILID PHOSPHATE TAB [Suspect]
     Indication: DEPRESSION
     Route: 048
     Dates: start: 19910101, end: 20110824
  8. PERINDOPRIL ERBUMINE [Suspect]
     Route: 048
     Dates: end: 20110826
  9. ASPIRIN [Suspect]
     Route: 048
     Dates: end: 20110901
  10. PREVISCAN [Suspect]
  11. IMOVANE [Suspect]
  12. MARSILID PHOSPHATE TAB [Suspect]
     Route: 048
     Dates: start: 20110909, end: 20110915

REACTIONS (3)
  - ORTHOSTATIC HYPOTENSION [None]
  - RENAL FAILURE ACUTE [None]
  - HYPERTENSION [None]
